FAERS Safety Report 10163061 (Version 1)
Quarter: 2014Q2

REPORT INFORMATION
  Report Type: Spontaneous
  Country: IE (occurrence: IE)
  Receive Date: 20140509
  Receipt Date: 20140509
  Transmission Date: 20141212
  Serious: Yes (Disabling)
  Sender: FDA-Public Use
  Company Number: PHHY2014IE055077

PATIENT
  Age: 79 Year
  Sex: Male

DRUGS (3)
  1. ATECOR [Suspect]
     Indication: CEREBROVASCULAR ACCIDENT
     Dosage: 25 MG, DAILY
     Route: 048
  2. LIPITOR [Suspect]
     Indication: CEREBROVASCULAR ACCIDENT
     Dosage: 10 MG, DAILY
     Route: 048
  3. COZAAR COMP [Concomitant]
     Indication: ATRIAL FIBRILLATION
     Dosage: 15 MG, DAILY
     Route: 048

REACTIONS (2)
  - Hypoaesthesia [Recovered/Resolved with Sequelae]
  - Paraesthesia [Recovered/Resolved with Sequelae]
